FAERS Safety Report 9197960 (Version 1)
Quarter: 2013Q1

REPORT INFORMATION
  Report Type: Report from Study
  Country: IL (occurrence: IL)
  Receive Date: 20130328
  Receipt Date: 20130328
  Transmission Date: 20140127
  Serious: Yes (Other)
  Sender: FDA-Public Use
  Company Number: IL-ROCHE-1204247

PATIENT
  Sex: 0

DRUGS (3)
  1. PEG-INTERFERON ALFA 2A [Suspect]
     Indication: CHRONIC HEPATITIS C
     Route: 065
  2. RIBAVIRIN [Suspect]
     Indication: CHRONIC HEPATITIS C
     Route: 065
  3. PEGINTERFERON ALFA-2B [Suspect]
     Indication: CHRONIC HEPATITIS C
     Route: 065

REACTIONS (23)
  - Meningitis aseptic [Unknown]
  - Headache [Unknown]
  - Rash [Unknown]
  - Influenza like illness [Unknown]
  - Malaise [Unknown]
  - Pyrexia [Unknown]
  - Lymphadenopathy [Unknown]
  - Decreased appetite [Unknown]
  - Weight decreased [Unknown]
  - Alopecia [Unknown]
  - Myalgia [Unknown]
  - Fat necrosis [Unknown]
  - Somnolence [Unknown]
  - Sleep disorder [Unknown]
  - Anaemia [Unknown]
  - Neutropenia [Unknown]
  - Thrombocytopenia [Unknown]
  - Leukopenia [Unknown]
  - Aphthous stomatitis [Unknown]
  - Gastrointestinal disorder [Unknown]
  - Pruritus [Unknown]
  - Hyperbilirubinaemia [Unknown]
  - Hypothyroidism [Recovered/Resolved]
